FAERS Safety Report 6115885-0 (Version None)
Quarter: 2009Q1

REPORT INFORMATION
  Report Type: 
  Country: None (occurrence: None)
  Receive Date: 20090309
  Receipt Date: 20090224
  Transmission Date: 20090719
  Serious: Yes (Hospitalization)
  Sender: FDA-Public Use
  Company Number: AEUSA200900033

PATIENT
  Age: 61 Year
  Sex: Male

DRUGS (2)
  1. GAMUNEX [Suspect]
     Indication: MYASTHENIA GRAVIS
     Dosage: 40 GM; 1X; IV
     Route: 042
     Dates: start: 20090224, end: 20090224
  2. SOLU-MEDROL [Suspect]
     Indication: MYASTHENIA GRAVIS
     Dosage: 1 GM; QDX; IV
     Route: 042
     Dates: start: 20090224

REACTIONS (1)
  - BRONCHOSPASM [None]
